FAERS Safety Report 7553671-5 (Version None)
Quarter: 2011Q2

REPORT INFORMATION
  Report Type: 
  Country: None (occurrence: None)
  Receive Date: 20110614
  Receipt Date: 20110614
  Transmission Date: 20111010
  Serious: No
  Sender: FDA-Public Use
  Company Number: None

PATIENT
  Age: 7 Year
  Sex: Male
  Weight: 21.7727 kg

DRUGS (1)
  1. VYVANSE [Suspect]
     Indication: ATTENTION DEFICIT/HYPERACTIVITY DISORDER
     Dosage: 30MG ONCE PO
     Route: 048
     Dates: start: 20110611, end: 20110611

REACTIONS (5)
  - FEELING ABNORMAL [None]
  - LOGORRHOEA [None]
  - NERVOUSNESS [None]
  - TIC [None]
  - EMOTIONAL DISORDER [None]
